FAERS Safety Report 6942372-X (Version None)
Quarter: 2010Q3

REPORT INFORMATION
  Report Type: 
  Country: None (occurrence: None)
  Receive Date: 20100826
  Receipt Date: 20100812
  Transmission Date: 20110219
  Serious: Yes (Other)
  Sender: FDA-Public Use
  Company Number: PHHY2010US53486

PATIENT
  Sex: Female

DRUGS (1)
  1. FEMARA [Suspect]
     Dosage: 2.5 MG
     Route: 048
     Dates: start: 20100802

REACTIONS (4)
  - FALL [None]
  - SURGERY [None]
  - WALKING AID USER [None]
  - WRIST FRACTURE [None]
